FAERS Safety Report 7987043-6 (Version None)
Quarter: 2011Q4

REPORT INFORMATION
  Report Type: 
  Country: None (occurrence: None)
  Receive Date: 20111216
  Receipt Date: 20110920
  Transmission Date: 20120403
  Serious: No
  Sender: FDA-Public Use
  Company Number: US-BRISTOL-MYERS SQUIBB COMPANY-16076705

PATIENT
  Age: 8 Year
  Sex: Female
  Weight: 33 kg

DRUGS (5)
  1. ABILIFY [Suspect]
     Indication: ASPERGER'S DISORDER
     Dosage: PRESCRIPTION:351761
     Dates: start: 20110801
  2. GUANFACINE HYDROCHLORIDE [Concomitant]
  3. ABILIFY [Suspect]
     Indication: ATTENTION DEFICIT/HYPERACTIVITY DISORDER
     Dosage: PRESCRIPTION:351761
     Dates: start: 20110801
  4. PROZAC [Concomitant]
  5. CLONIDINE [Concomitant]

REACTIONS (3)
  - RESTLESSNESS [None]
  - EATING DISORDER [None]
  - WEIGHT INCREASED [None]
